FAERS Safety Report 6137160-0 (Version None)
Quarter: 2009Q1

REPORT INFORMATION
  Report Type: 
  Country: None (occurrence: None)
  Receive Date: 20090330
  Receipt Date: 20090320
  Transmission Date: 20090719
  Serious: Yes (Life-Threatening, Hospitalization)
  Sender: FDA-Public Use
  Company Number: FR-PFIZER INC-2009187752

PATIENT

DRUGS (1)
  1. TAHOR [Suspect]
     Dates: start: 20010101, end: 20080814

REACTIONS (2)
  - RENAL TUBULAR NECROSIS [None]
  - RHABDOMYOLYSIS [None]
